FAERS Safety Report 6913284-2 (Version None)
Quarter: 2010Q3

REPORT INFORMATION
  Report Type: 
  Country: None (occurrence: None)
  Receive Date: 20100809
  Receipt Date: 20100729
  Transmission Date: 20110219
  Serious: No
  Sender: FDA-Public Use
  Company Number: US-BIOGENIDEC-2010BI012845

PATIENT
  Age: 22 Year
  Sex: Male

DRUGS (1)
  1. TYSABRI [Suspect]
     Indication: MULTIPLE SCLEROSIS
     Dates: start: 20090201

REACTIONS (4)
  - EOSINOPHILIA [None]
  - HAEMATOLOGY TEST ABNORMAL [None]
  - HYPOAESTHESIA FACIAL [None]
  - PAIN IN EXTREMITY [None]
